FAERS Safety Report 8082656-8 (Version None)
Quarter: 2012Q1

REPORT INFORMATION
  Report Type: 
  Country: None (occurrence: None)
  Receive Date: 20120127
  Receipt Date: 20110224
  Transmission Date: 20120608
  Serious: No
  Sender: FDA-Public Use
  Company Number: US-ABBOTT-11P-163-0707532-00

PATIENT
  Age: 18 Year
  Sex: Female

DRUGS (5)
  1. IBS MEDICATION [Concomitant]
     Indication: COLITIS ULCERATIVE
  2. LEALDA [Concomitant]
     Indication: COLITIS ULCERATIVE
  3. HUMIRA [Suspect]
     Dates: start: 20110225, end: 20110225
  4. HUMIRA [Suspect]
     Indication: PRODUCT USED FOR UNKNOWN INDICATION
     Dates: start: 20110211
  5. VITAMIN D [Concomitant]
     Indication: COLITIS ULCERATIVE

REACTIONS (3)
  - INFLUENZA LIKE ILLNESS [None]
  - COUGH [None]
  - PYREXIA [None]
